FAERS Safety Report 6765660-9 (Version None)
Quarter: 2010Q2

REPORT INFORMATION
  Report Type: 
  Country: None (occurrence: None)
  Receive Date: 20100609
  Receipt Date: 20100526
  Transmission Date: 20101027
  Serious: Yes (Hospitalization)
  Sender: FDA-Public Use
  Company Number: 2010AM002245

PATIENT
  Age: 64 Year
  Sex: Male
  Weight: 175.0885 kg

DRUGS (10)
  1. SYMLIN [Suspect]
     Indication: TYPE 2 DIABETES MELLITUS
     Dosage: 60 MCG;BID;SC
     Route: 058
     Dates: start: 20090101
  2. LANTUS [Concomitant]
  3. METFORMIN [Concomitant]
  4. GLIPIZIDE [Concomitant]
  5. CELEBREX [Concomitant]
  6. LASIX [Concomitant]
  7. ACTOS [Concomitant]
  8. CLINDAMYCIN [Concomitant]
  9. NEURONTIN [Concomitant]
  10. PREV MEDS [Concomitant]

REACTIONS (7)
  - BLOOD GLUCOSE INCREASED [None]
  - CARDIAC FAILURE CONGESTIVE [None]
  - DIZZINESS [None]
  - NAUSEA [None]
  - OVERDOSE [None]
  - SKIN ULCER [None]
  - VOMITING [None]
